FAERS Safety Report 23566176 (Version 3)
Quarter: 2024Q1

REPORT INFORMATION
  Report Type: Spontaneous
  Country: DE (occurrence: DE)
  Receive Date: 20240226
  Receipt Date: 20240305
  Transmission Date: 20240410
  Serious: Yes (Other)
  Sender: FDA-Public Use
  Company Number: DE-ABBVIE-5647904

PATIENT
  Age: 80 Year
  Sex: Female

DRUGS (3)
  1. CARBIDOPA\LEVODOPA [Suspect]
     Active Substance: CARBIDOPA\LEVODOPA
     Indication: Parkinson^s disease
     Dates: start: 2022, end: 202312
  2. CARBIDOPA\LEVODOPA [Suspect]
     Active Substance: CARBIDOPA\LEVODOPA
  3. FOSCARBIDOPA\FOSLEVODOPA [Suspect]
     Active Substance: FOSCARBIDOPA\FOSLEVODOPA
     Indication: Parkinson^s disease
     Route: 058
     Dates: start: 202312

REACTIONS (8)
  - Suicidal ideation [Not Recovered/Not Resolved]
  - Stoma site abscess [Not Recovered/Not Resolved]
  - Infusion site erythema [Recovered/Resolved]
  - Therapeutic product effect incomplete [Unknown]
  - Infusion site swelling [Recovered/Resolved]
  - Anxiety [Not Recovered/Not Resolved]
  - Abscess drainage [Unknown]
  - Surgical failure [Unknown]

NARRATIVE: CASE EVENT DATE: 20230101
